FAERS Safety Report 20841088 (Version 1)
Quarter: 2022Q2

REPORT INFORMATION
  Report Type: Spontaneous
  Country: US (occurrence: US)
  Receive Date: 20220517
  Receipt Date: 20220517
  Transmission Date: 20220720
  Serious: No
  Sender: FDA-Public Use
  Company Number: US-PFIZER INC-202101883049

PATIENT
  Age: 68 Year
  Sex: Male
  Weight: 103.4 kg

DRUGS (3)
  1. DILANTIN [Suspect]
     Active Substance: PHENYTOIN
     Dosage: 500 MG, 3X/DAY (THREE TIMES A DAY)
  2. DILANTIN [Suspect]
     Active Substance: PHENYTOIN
     Dosage: 500 MG, 2X/DAY
  3. DILANTIN [Suspect]
     Active Substance: PHENYTOIN
     Dosage: 500 MG, 1X/DAY
     Dates: end: 202110

REACTIONS (2)
  - Micturition urgency [Unknown]
  - Overdose [Unknown]

NARRATIVE: CASE EVENT DATE: 20211101
